FAERS Safety Report 8717259 (Version 3)
Quarter: 2013Q1

REPORT INFORMATION
  Report Type: Spontaneous
  Country: FR (occurrence: FR)
  Receive Date: 20120810
  Receipt Date: 20130213
  Transmission Date: 20140127
  Serious: Yes (Death)
  Sender: FDA-Public Use
  Company Number: FR-PFIZER INC-2012190164

PATIENT
  Age: 66 Year
  Sex: Male
  Weight: 87 kg

DRUGS (29)
  1. VFEND [Suspect]
     Indication: ASPERGILLUS INFECTION
     Dosage: 200 MG, 2X/DAY
     Route: 048
     Dates: start: 201110, end: 20120511
  2. METHYLPREDNISOLONE [Suspect]
     Indication: IMMUNOSUPPRESSION
     Dosage: 80 MG, 2X/DAY
     Route: 042
     Dates: start: 20120218, end: 20120511
  3. METHYLPREDNISOLONE [Suspect]
     Dosage: AT DOSE DECREASED
     Dates: start: 20120308
  4. EFFEXOR LP [Suspect]
     Indication: DEPRESSION
     Dosage: 75 MG, 1X/DAY VARIABLE
     Route: 048
     Dates: start: 20120313, end: 20120322
  5. FUROSEMIDE [Suspect]
     Indication: OEDEMA PERIPHERAL
     Dosage: UNK
     Dates: start: 20120224
  6. SANDIMMUN [Suspect]
     Indication: CORD BLOOD TRANSPLANT THERAPY
     Dosage: ADMINISTRATION IN CONTINUE
     Route: 042
     Dates: start: 20120123, end: 20120404
  7. HEPARIN CALCIUM [Suspect]
     Indication: PROPHYLAXIS
     Dosage: 7500 (UNSPECIFIED UNIT) DAILY
     Route: 042
     Dates: start: 20120122, end: 20120322
  8. PLITICAN [Suspect]
     Indication: PROPHYLAXIS
     Dosage: VARIABLE DOSE
     Route: 042
     Dates: start: 20120119, end: 20120319
  9. ALBUMIN (HUMAN) [Suspect]
     Indication: HYPOALBUMINAEMIA
     Dosage: 20 G/ML DAILY
     Route: 042
     Dates: start: 20120224, end: 20120306
  10. ALBUMIN (HUMAN) [Suspect]
     Dosage: 20 G/ML DAILY
     Route: 042
     Dates: start: 20120312, end: 20120507
  11. LEVOTHYROX [Suspect]
     Indication: HYPOTHYROIDISM
     Dosage: 150 UG DAILY
     Route: 042
     Dates: start: 2009, end: 20120511
  12. URSOLVAN [Suspect]
     Indication: CHOLESTASIS
     Dosage: 1.5 G, 1X/DAY
     Route: 048
     Dates: start: 20120119, end: 20120511
  13. STILNOX [Suspect]
     Indication: INSOMNIA
     Dosage: 10 MG, 1X/DAY
     Route: 048
     Dates: start: 20120214, end: 20120318
  14. LOXEN [Suspect]
     Indication: HYPERTENSION
     Dosage: 50 MG, 1X/DAY
     Route: 048
     Dates: start: 20120206, end: 20120415
  15. MOPRAL [Suspect]
     Indication: PROPHYLAXIS
     Dosage: VARIABLE DOSE
     Route: 042
  16. ORACILLINE [Suspect]
     Indication: CYTOMEGALOVIRUS INFECTION
     Dosage: 1 MILLIONIU, 2X/DAY
     Route: 048
     Dates: start: 20120221, end: 20120322
  17. BACTRIM FORTE [Suspect]
     Indication: CYTOMEGALOVIRUS INFECTION
     Dosage: 1 DF THREE TIMES PER WEEK
     Route: 048
     Dates: start: 20120221, end: 20120405
  18. BACTRIM FORTE [Suspect]
     Dosage: UNK
     Dates: start: 20120118, end: 20120120
  19. TIORFAN [Suspect]
     Indication: DIARRHOEA
     Dosage: 2 G, 3X/DAY
     Route: 048
     Dates: start: 20120222, end: 20120425
  20. SPECIAFOLDINE [Suspect]
     Indication: VITAMIN B12 DEFICIENCY
     Dosage: 5 MG, 1X/DAY
     Dates: start: 20120223, end: 20120405
  21. ROVALCYTE [Suspect]
     Indication: CYTOMEGALOVIRUS INFECTION
     Dosage: 900 MG, 1X/DAY
     Route: 048
     Dates: start: 20120309, end: 20120317
  22. TRANXENE [Suspect]
     Indication: ANXIETY
     Dosage: VARIABLE DOSE
     Route: 048
     Dates: start: 20120129, end: 20120316
  23. INEXIUM [Suspect]
     Indication: GASTRODUODENAL ULCER
     Dosage: 20 MG, 1X/DAY VARIABLE
     Route: 048
     Dates: start: 20120119, end: 20120511
  24. CELLCEPT [Suspect]
     Indication: CORD BLOOD TRANSPLANT THERAPY
     Dosage: 500 MG, 2X/DAY
     Route: 042
     Dates: start: 20120123, end: 20120123
  25. CELLCEPT [Suspect]
     Dosage: 1 G, 2X/DAY
     Dates: start: 20120124, end: 20120124
  26. CELLCEPT [Suspect]
     Dosage: 500 MG, 2X/DAY
     Dates: start: 20120304, end: 20120306
  27. CELLCEPT [Suspect]
     Dosage: 500 MG, 2X/DAY
     Dates: start: 20120327
  28. FOSCAVIR [Concomitant]
     Indication: CYTOMEGALOVIRUS INFECTION
     Dosage: 6 G, 2X/DAY
     Dates: start: 20120225, end: 20120309
  29. FOSCAVIR [Concomitant]
     Dosage: UNK
     Dates: start: 20120506

REACTIONS (1)
  - Thrombotic microangiopathy [Fatal]
